FAERS Safety Report 18098164 (Version 5)
Quarter: 2021Q2

REPORT INFORMATION
  Report Type: Spontaneous
  Country: US (occurrence: US)
  Receive Date: 20200731
  Receipt Date: 20210429
  Transmission Date: 20210717
  Serious: No
  Sender: FDA-Public Use
  Company Number: NVSC2020US214255

PATIENT
  Sex: Female

DRUGS (2)
  1. ZOFRAN [Suspect]
     Active Substance: ONDANSETRON HYDROCHLORIDE
     Indication: MORNING SICKNESS
     Dosage: 4 MG
     Route: 048
     Dates: start: 2014, end: 2015
  2. ZOFRAN ODT [Suspect]
     Active Substance: ONDANSETRON HYDROCHLORIDE
     Indication: PRODUCT USED FOR UNKNOWN INDICATION
     Route: 048

REACTIONS (19)
  - Diarrhoea [Unknown]
  - Rhinorrhoea [Unknown]
  - Ear pain [Unknown]
  - Rhinitis allergic [Unknown]
  - Product use issue [Unknown]
  - Product use in unapproved indication [Unknown]
  - Anhedonia [Unknown]
  - Nasal congestion [Unknown]
  - Emotional distress [Unknown]
  - Oropharyngeal pain [Unknown]
  - Abdominal pain [Unknown]
  - Anaemia [Unknown]
  - Muscle strain [Unknown]
  - Maternal exposure during pregnancy [Unknown]
  - Injury [Unknown]
  - Pain [Not Recovered/Not Resolved]
  - Pelvic pain [Unknown]
  - Anxiety [Unknown]
  - Gastroenteritis [Unknown]
